FAERS Safety Report 6717449-4 (Version None)
Quarter: 2010Q2

REPORT INFORMATION
  Report Type: 
  Country: None (occurrence: None)
  Receive Date: 20100510
  Receipt Date: 20100429
  Transmission Date: 20101027
  Serious: Yes (Death, Hospitalization, Other)
  Sender: FDA-Public Use
  Company Number: GB-ROCHE-700460

PATIENT
  Sex: Male
  Weight: 94.2 kg

DRUGS (3)
  1. XELODA [Suspect]
     Indication: RECTAL CANCER
     Dosage: TO BE TAKEN DAY 1 TO 14 OF A 21 DAY CYCLE
     Route: 048
     Dates: start: 20081208
  2. OXALIPLATIN [Concomitant]
     Indication: RECTAL CANCER
     Route: 042
     Dates: start: 20081208
  3. METFORMIN HYDROCHLORIDE [Concomitant]

REACTIONS (17)
  - DEHYDRATION [None]
  - ERYTHEMA [None]
  - FATIGUE [None]
  - FULL BLOOD COUNT DECREASED [None]
  - GENERAL PHYSICAL HEALTH DETERIORATION [None]
  - ILL-DEFINED DISORDER [None]
  - LIP SWELLING [None]
  - MALAISE [None]
  - MOUTH ULCERATION [None]
  - NEUTROPENIA [None]
  - OEDEMA MOUTH [None]
  - ORAL CANDIDIASIS [None]
  - ORAL PAIN [None]
  - OROPHARYNGEAL PAIN [None]
  - OVERDOSE [None]
  - PHARYNGEAL INFLAMMATION [None]
  - SPEECH DISORDER [None]
